FAERS Safety Report 16263472 (Version 2)
Quarter: 2019Q2

REPORT INFORMATION
  Report Type: Spontaneous
  Country: US (occurrence: US)
  Receive Date: 20190502
  Receipt Date: 20190502
  Transmission Date: 20190711
  Serious: No
  Sender: FDA-Public Use
  Company Number: US-EYEPOINT PHARMACEUTICALS, INC.-US-EYP-19-00007

PATIENT
  Age: 63 Year
  Sex: Female

DRUGS (2)
  1. YUTIQ [Suspect]
     Active Substance: FLUOCINOLONE ACETONIDE
     Indication: CHORIORETINITIS
  2. YUTIQ [Suspect]
     Active Substance: FLUOCINOLONE ACETONIDE
     Indication: CYCLITIS
     Route: 065
     Dates: start: 20190314

REACTIONS (3)
  - Product dose omission [Unknown]
  - Device issue [Unknown]
  - Off label use [Unknown]

NARRATIVE: CASE EVENT DATE: 20190314
